FAERS Safety Report 7247875-9 (Version None)
Quarter: 2011Q1

REPORT INFORMATION
  Report Type: 
  Country: None (occurrence: None)
  Receive Date: 20110127
  Receipt Date: 20110124
  Transmission Date: 20110831
  Serious: Yes (Other)
  Sender: FDA-Public Use
  Company Number: CH-PFIZER INC-2011011339

PATIENT
  Age: 60 Year
  Sex: Female

DRUGS (6)
  1. SORTIS [Suspect]
     Dosage: 40 MG, 1X/DAY
     Route: 048
  2. ASPIRIN [Suspect]
     Route: 048
  3. RENITEN [Suspect]
     Dosage: 10 MG, 1X/DAY
     Route: 048
  4. PLAQUENIL [Suspect]
     Dosage: 200 MG, UNK
     Route: 048
     Dates: start: 19990101
  5. PANTOZOL [Suspect]
     Dosage: 40 MG, 1X/DAY
     Route: 048
  6. BONIVA [Suspect]
     Dosage: 3 MG, EVERY 3 MONTHS
     Route: 040
     Dates: start: 20100302, end: 20100902

REACTIONS (3)
  - JAUNDICE [None]
  - SYSTEMIC LUPUS ERYTHEMATOSUS [None]
  - HEPATITIS CHOLESTATIC [None]
